FAERS Safety Report 13887749 (Version 2)
Quarter: 2018Q2

REPORT INFORMATION
  Report Type: Spontaneous
  Country: CH (occurrence: CH)
  Receive Date: 20170821
  Receipt Date: 20180604
  Transmission Date: 20180711
  Serious: Yes (Hospitalization)
  Sender: FDA-Public Use
  Company Number: CH-ALLERGAN-1735587US

PATIENT
  Age: 74 Year
  Sex: Male

DRUGS (29)
  1. XANAX [Concomitant]
     Active Substance: ALPRAZOLAM
     Dosage: 1.5 MG, QD (0.5-0-1)
     Route: 065
     Dates: start: 201609, end: 20170711
  2. SEROQUEL [Concomitant]
     Active Substance: QUETIAPINE FUMARATE
     Dosage: 75 MG, QD (50-0-25)
     Route: 065
     Dates: start: 20170516, end: 20170524
  3. VI-DE 3 [Concomitant]
     Active Substance: CHOLECALCIFEROL
     Dosage: 800 UNITS, QD
     Route: 065
     Dates: start: 201609, end: 20170518
  4. ZYPREXA [Concomitant]
     Active Substance: OLANZAPINE
     Dosage: 7.5 MG, QD (2.5-0-5)
     Route: 065
     Dates: start: 20170712, end: 20170716
  5. RISPERDAL [Concomitant]
     Active Substance: RISPERIDONE
     Dosage: 4.5 MG, QD (2.5-0-2)
     Route: 065
     Dates: start: 20170718, end: 20170718
  6. ZYPREXA [Concomitant]
     Active Substance: OLANZAPINE
     Dosage: 2.5 MG, QPM
     Route: 065
     Dates: start: 20170706, end: 20170706
  7. ZYPREXA [Concomitant]
     Active Substance: OLANZAPINE
     Dosage: 2.5 MG, BID
     Route: 065
     Dates: start: 20170711, end: 20170711
  8. RISPERDAL [Concomitant]
     Active Substance: RISPERIDONE
     Dosage: 3 MG, QD
     Route: 065
     Dates: start: 20170719
  9. ORFIRIL [Suspect]
     Active Substance: VALPROATE SODIUM
     Dosage: 2250 MG, QD
     Route: 048
  10. CIPRALEX [Concomitant]
     Active Substance: ESCITALOPRAM OXALATE
     Dosage: 10 MG, QD
     Route: 065
     Dates: start: 20170706, end: 20170708
  11. XANAX [Concomitant]
     Active Substance: ALPRAZOLAM
     Dosage: 2.5 MG, UNK
     Route: 065
  12. SEROQUEL [Concomitant]
     Active Substance: QUETIAPINE FUMARATE
     Dosage: 25 MG, BID (MORNING AND MIDDAY)
     Route: 065
     Dates: start: 20170706, end: 20170707
  13. ORFIRIL [Suspect]
     Active Substance: VALPROATE SODIUM
     Indication: ABNORMAL BEHAVIOUR
     Dosage: 300 MG, QD
     Route: 048
     Dates: start: 20170627
  14. EFEXOR [Concomitant]
     Active Substance: VENLAFAXINE HYDROCHLORIDE
     Dosage: 37.5 MG, QD
     Route: 065
     Dates: start: 20170628, end: 20170704
  15. XANAX [Concomitant]
     Active Substance: ALPRAZOLAM
     Dosage: UNK
     Route: 065
     Dates: start: 20170626, end: 20170711
  16. CITALOPRAM HYDROBROMIDE - BP [Interacting]
     Active Substance: CITALOPRAM HYDROBROMIDE
     Dosage: 20 MG, QD
     Route: 048
     Dates: start: 20170713, end: 20170717
  17. ORFIRIL [Suspect]
     Active Substance: VALPROATE SODIUM
     Dosage: 1500 MG, QD (500-0-1,000)
     Route: 048
     Dates: start: 20170714
  18. RISPERDAL [Concomitant]
     Active Substance: RISPERIDONE
     Dosage: 2 MG, QPM (AT 18:00)
     Route: 065
     Dates: start: 20170717, end: 20170717
  19. ORFIRIL [Suspect]
     Active Substance: VALPROATE SODIUM
     Dosage: 2500 MG, QD (1000-0-1,500)
     Route: 048
  20. SEROQUEL [Concomitant]
     Active Substance: QUETIAPINE FUMARATE
     Dosage: 25 MG, Q12H
     Route: 065
     Dates: start: 20170525, end: 20170705
  21. CETRIZINE [Concomitant]
     Active Substance: CETIRIZINE HYDROCHLORIDE
     Dosage: 10 MG, QD
     Route: 065
     Dates: start: 201609, end: 20170518
  22. FOLIC ACID. [Concomitant]
     Active Substance: FOLIC ACID
     Dosage: 5 MG, QD
     Route: 065
     Dates: start: 201609
  23. ZYPREXA [Concomitant]
     Active Substance: OLANZAPINE
     Dosage: 2.5 MG, QD
     Route: 065
     Dates: start: 20170717, end: 20170717
  24. CITALOPRAM HYDROBROMIDE - BP [Suspect]
     Active Substance: CITALOPRAM HYDROBROMIDE
     Indication: PRODUCT USED FOR UNKNOWN INDICATION
     Dosage: 10 MG, QD
     Route: 048
     Dates: start: 20170708, end: 20170712
  25. NEXIUM [Interacting]
     Active Substance: ESOMEPRAZOLE MAGNESIUM
     Indication: PRODUCT USED FOR UNKNOWN INDICATION
     Dosage: 40 MG, QD
     Route: 048
     Dates: start: 201609
  26. EFEXOR [Concomitant]
     Active Substance: VENLAFAXINE HYDROCHLORIDE
     Dosage: 75 MG, QAM
     Route: 065
     Dates: start: 201609, end: 20170627
  27. CYANOCOBALAMIN. [Concomitant]
     Active Substance: CYANOCOBALAMIN
     Dosage: 1 MG, QD
     Route: 065
     Dates: start: 201609, end: 20170518
  28. ZYPREXA [Concomitant]
     Active Substance: OLANZAPINE
     Dosage: 3.75 MG, QD (1.25-0-2.5)
     Route: 065
     Dates: start: 20170707, end: 20170710
  29. RESONIUM [Concomitant]
     Active Substance: SODIUM POLYSTYRENE SULFONATE
     Dosage: 15 G, QD
     Route: 065

REACTIONS (4)
  - Loss of consciousness [Unknown]
  - Epilepsy [Recovered/Resolved]
  - Drug interaction [Unknown]
  - Disinhibition [Unknown]

NARRATIVE: CASE EVENT DATE: 20170719
